FAERS Safety Report 16462882 (Version 1)
Quarter: 2019Q2

REPORT INFORMATION
  Report Type: Spontaneous
  Country: BE (occurrence: BE)
  Receive Date: 20190621
  Receipt Date: 20190621
  Transmission Date: 20190711
  Serious: Yes (Death, Hospitalization)
  Sender: FDA-Public Use
  Company Number: BE-B.I. PHARMACEUTICALS,INC./RIDGEFIELD-2019-BI-027374

PATIENT
  Sex: Male

DRUGS (1)
  1. PRADAXA [Suspect]
     Active Substance: DABIGATRAN ETEXILATE MESYLATE
     Indication: PRODUCT USED FOR UNKNOWN INDICATION
     Route: 065

REACTIONS (3)
  - Acute kidney injury [Fatal]
  - Gastrointestinal haemorrhage [Recovered/Resolved]
  - General physical health deterioration [Fatal]

NARRATIVE: CASE EVENT DATE: 2019
